FAERS Safety Report 20333477 (Version 3)
Quarter: 2022Q1

REPORT INFORMATION
  Report Type: Report from Study
  Country: US (occurrence: US)
  Receive Date: 20220113
  Receipt Date: 20220217
  Transmission Date: 20220424
  Serious: Yes (Hospitalization)
  Sender: FDA-Public Use
  Company Number: US-PFIZER INC-202200016218

PATIENT
  Age: 35 Year
  Sex: Female
  Weight: 74.1 kg

DRUGS (5)
  1. INOTUZUMAB OZOGAMICIN [Suspect]
     Active Substance: INOTUZUMAB OZOGAMICIN
     Indication: B precursor type acute leukaemia
     Dosage: 0.5 MG/M2/DAY, DAY 1, 8 AND 15 OF A 28-DAY CYCLE
     Route: 042
     Dates: start: 20210513, end: 20210624
  2. DOXORUBICIN HYDROCHLORIDE [Suspect]
     Active Substance: DOXORUBICIN HYDROCHLORIDE
     Indication: B precursor type acute leukaemia
     Dosage: UNK, CYCLIC
     Dates: start: 20210407
  3. METHOTREXATE SODIUM [Suspect]
     Active Substance: METHOTREXATE SODIUM
     Indication: B precursor type acute leukaemia
     Dosage: UNK, CYCLIC
     Dates: start: 20210407
  4. VINCRISTINE SULFATE [Suspect]
     Active Substance: VINCRISTINE SULFATE
     Indication: B precursor type acute leukaemia
     Dosage: UNK, CYCLIC
     Dates: start: 20210407
  5. ONCASPAR [Suspect]
     Active Substance: PEGASPARGASE
     Indication: B precursor type acute leukaemia
     Dosage: UNK, CYCLIC
     Dates: start: 20210407

REACTIONS (1)
  - Neutropenic colitis [Recovering/Resolving]

NARRATIVE: CASE EVENT DATE: 20220103
